FAERS Safety Report 9670879 (Version 2)
Quarter: 2013Q4

REPORT INFORMATION
  Report Type: Spontaneous
  Country: US (occurrence: US)
  Receive Date: 20131106
  Receipt Date: 20131106
  Transmission Date: 20140711
  Serious: Yes (Other)
  Sender: FDA-Public Use
  Company Number: PHEH2013US018619

PATIENT
  Age: 71 Year
  Sex: Female
  Weight: 76 kg

DRUGS (2)
  1. GILENYA [Suspect]
     Route: 048
  2. CORTICOSTEROIDS [Concomitant]

REACTIONS (4)
  - Monoclonal gammopathy [Unknown]
  - Immunoglobulins decreased [Unknown]
  - CD4 lymphocytes decreased [Unknown]
  - Herpes zoster [Unknown]
